FAERS Safety Report 10837730 (Version 1)
Quarter: 2015Q1

REPORT INFORMATION
  Report Type: Spontaneous
  Country: US (occurrence: US)
  Receive Date: 20150219
  Receipt Date: 20150219
  Transmission Date: 20150721
  Serious: No
  Sender: FDA-Public Use
  Company Number: US-GLAXOSMITHKLINE-US2015000749

PATIENT
  Age: 67 Year
  Sex: Male

DRUGS (4)
  1. LAMICTAL [Suspect]
     Active Substance: LAMOTRIGINE
     Indication: BIPOLAR DISORDER
     Dosage: 200 MG, BID
     Route: 048
     Dates: start: 2008, end: 20141223
  2. XANAX [Concomitant]
     Active Substance: ALPRAZOLAM
  3. ADVIL [Concomitant]
     Active Substance: IBUPROFEN
  4. PRISTIQ EXTENDED RELEASE [Concomitant]
     Active Substance: DESVENLAFAXINE SUCCINATE

REACTIONS (4)
  - Dysphonia [Not Recovered/Not Resolved]
  - Urticaria [Not Recovered/Not Resolved]
  - Lip swelling [Not Recovered/Not Resolved]
  - Eye swelling [Not Recovered/Not Resolved]

NARRATIVE: CASE EVENT DATE: 201406
